FAERS Safety Report 7914295-0 (Version None)
Quarter: 2011Q4

REPORT INFORMATION
  Report Type: 
  Country: None (occurrence: None)
  Receive Date: 20111115
  Receipt Date: 20111103
  Transmission Date: 20120403
  Serious: Yes (Other)
  Sender: FDA-Public Use
  Company Number: JP-BAXTER-2011BH035579

PATIENT

DRUGS (6)
  1. VINCRISTINE SULFATE [Suspect]
     Indication: B-CELL LYMPHOMA
     Route: 042
  2. CYCLOPHOSPHAMIDE [Suspect]
     Indication: B-CELL LYMPHOMA
     Route: 042
  3. DOXORUBICIN HCL [Suspect]
     Indication: B-CELL LYMPHOMA
     Route: 042
  4. RITUXIMAB [Suspect]
     Indication: B-CELL LYMPHOMA
     Route: 065
  5. NEUPOGEN [Suspect]
     Indication: B-CELL LYMPHOMA
     Route: 065
  6. PREDNISONE [Suspect]
     Indication: B-CELL LYMPHOMA
     Route: 048

REACTIONS (1)
  - MYELODYSPLASTIC SYNDROME [None]
